FAERS Safety Report 9240506 (Version 3)
Quarter: 2013Q2

REPORT INFORMATION
  Report Type: Report from Study
  Country: ES (occurrence: ES)
  Receive Date: 20130418
  Receipt Date: 20130430
  Transmission Date: 20140414
  Serious: Yes (Other)
  Sender: FDA-Public Use
  Company Number: ES-GILEAD-2013-0072340

PATIENT
  Age: 61 Year
  Sex: Female

DRUGS (4)
  1. BLINDED PLACEBO [Suspect]
     Indication: HYPERTROPHIC CARDIOMYOPATHY
     Dosage: 500 MG, BID
     Route: 048
     Dates: start: 20120920, end: 20130206
  2. BLINDED RANOLAZINE [Suspect]
     Indication: HYPERTROPHIC CARDIOMYOPATHY
     Dosage: 500 MG, BID
     Route: 048
     Dates: start: 20120920, end: 20130206
  3. BLINDED PLACEBO [Suspect]
     Dosage: UNK
     Dates: start: 20130218
  4. BLINDED RANOLAZINE [Suspect]
     Dosage: UNK
     Dates: start: 20130218

REACTIONS (2)
  - Syncope [Recovered/Resolved]
  - Influenza [Recovered/Resolved]
